FAERS Safety Report 10747325 (Version 2)
Quarter: 2015Q1

REPORT INFORMATION
  Report Type: Spontaneous
  Country: NZ (occurrence: NZ)
  Receive Date: 20150129
  Receipt Date: 20150213
  Transmission Date: 20150721
  Serious: Yes (Death)
  Sender: FDA-Public Use
  Company Number: NZ-RANBAXY-2015RR-92104

PATIENT
  Age: 29 Month
  Weight: 11 kg

DRUGS (1)
  1. PARACETAMOL [Suspect]
     Active Substance: ACETAMINOPHEN
     Indication: PRODUCT USED FOR UNKNOWN INDICATION
     Dosage: 62 MG/KG, DAILY
     Route: 048

REACTIONS (2)
  - Incorrect drug administration duration [Fatal]
  - Acute hepatic failure [Fatal]
